FAERS Safety Report 24001595 (Version 1)
Quarter: 2024Q2

REPORT INFORMATION
  Report Type: Spontaneous
  Country: GB (occurrence: GB)
  Receive Date: 20240621
  Receipt Date: 20240621
  Transmission Date: 20240716
  Serious: Yes (Life-Threatening, Hospitalization, Disabling, Other)
  Sender: FDA-Public Use
  Company Number: GB-009507513-2406GBR005636

PATIENT
  Age: 51 Year
  Sex: Female

DRUGS (6)
  1. PEMBROLIZUMAB [Suspect]
     Active Substance: PEMBROLIZUMAB
     Indication: Triple negative breast cancer
     Dosage: UNK
     Dates: start: 20230818, end: 20230929
  2. PACLITAXEL [Suspect]
     Active Substance: PACLITAXEL
     Indication: Triple negative breast cancer
     Dosage: UNK
     Dates: start: 20230818
  3. CARBOPLATIN [Suspect]
     Active Substance: CARBOPLATIN
     Indication: Triple negative breast cancer
     Dosage: UNK
     Dates: start: 20230818
  4. ETOPOSIDE [Suspect]
     Active Substance: ETOPOSIDE
     Indication: Triple negative breast cancer
     Dosage: UNK
     Dates: start: 20230818
  5. CISPLATIN [Suspect]
     Active Substance: CISPLATIN
  6. IBUPROFEN [Concomitant]
     Active Substance: IBUPROFEN
     Dosage: 400 MILLIGRAM, PRN
     Route: 048

REACTIONS (6)
  - Malignant neoplasm progression [Unknown]
  - Colitis [Recovered/Resolved]
  - Hypertransaminasaemia [Recovered/Resolved]
  - Arthralgia [Not Recovered/Not Resolved]
  - Surgery [Unknown]
  - Hospice care [Unknown]

NARRATIVE: CASE EVENT DATE: 20230123
